FAERS Safety Report 18258833 (Version 2)
Quarter: 2020Q4

REPORT INFORMATION
  Report Type: Report from Study
  Country: FR (occurrence: FR)
  Receive Date: 20200911
  Receipt Date: 20201009
  Transmission Date: 20210113
  Serious: Yes (Hospitalization)
  Sender: FDA-Public Use
  Company Number: FR-TAKEDA-2020TUS038076

PATIENT
  Sex: Female

DRUGS (3)
  1. TOFACITINIB [Concomitant]
     Active Substance: TOFACITINIB
     Dosage: 10 MILLIGRAM, QD
     Route: 065
  2. VEDOLIZUMAB [Suspect]
     Active Substance: VEDOLIZUMAB
     Indication: COLITIS ULCERATIVE
     Dosage: UNK
     Route: 042
     Dates: start: 20190506, end: 20191008
  3. USTEKINUMAB [Concomitant]
     Active Substance: USTEKINUMAB
     Dosage: UNK
     Dates: start: 20191104

REACTIONS (5)
  - Conjunctivitis [Recovered/Resolved]
  - Malnutrition [Recovered/Resolved]
  - Colitis ulcerative [Recovered/Resolved]
  - Sinusitis [Recovered/Resolved]
  - Urinary tract infection [Recovered/Resolved]

NARRATIVE: CASE EVENT DATE: 202009
